FAERS Safety Report 8907974 (Version 1)
Quarter: 2012Q4

REPORT INFORMATION
  Report Type: 
  Country: IT (occurrence: IT)
  Receive Date: 20121114
  Receipt Date: 20121114
  Transmission Date: 20130627
  Serious: Yes (Hospitalization)
  Sender: FDA-Public Use
  Company Number: PHHY2012IT104039

PATIENT
  Age: 76 Year
  Sex: Female

DRUGS (5)
  1. TEGRETOL [Suspect]
     Indication: INTENTIONAL OVERDOSE
     Dosage: 10 DF, (total dose of 2000 mg)
     Route: 048
     Dates: start: 20121023, end: 20121023
  2. LORANS [Suspect]
     Indication: INTENTIONAL OVERDOSE
     Dosage: 3 DF, (total dose of 7.5 mg)
     Route: 048
     Dates: start: 20121023, end: 20121023
  3. DADUMIR [Concomitant]
  4. TRITTICO [Concomitant]
  5. SEREUPIN [Concomitant]

REACTIONS (4)
  - Sopor [Recovered/Resolved]
  - Intentional overdose [Recovered/Resolved]
  - Personality disorder [Recovered/Resolved]
  - Hypotension [Recovered/Resolved]
